FAERS Safety Report 7095701-3 (Version None)
Quarter: 2010Q4

REPORT INFORMATION
  Report Type: 
  Country: None (occurrence: None)
  Receive Date: 20101111
  Receipt Date: 20101028
  Transmission Date: 20110411
  Serious: Yes (Hospitalization, Other)
  Sender: FDA-Public Use
  Company Number: PHEH2006US10878

PATIENT
  Sex: Male

DRUGS (24)
  1. ZOMETA [Suspect]
  2. MELPHALAN HYDROCHLORIDE [Concomitant]
  3. PREDNISONE [Concomitant]
  4. CYTOXAN [Concomitant]
  5. HYDROCHLOROTHIAZIDE [Concomitant]
  6. THALIDOMIDE [Concomitant]
  7. DEXAMETHASONE [Concomitant]
  8. NEURONTIN [Concomitant]
  9. CHANTIX [Concomitant]
  10. WELLBUTRIN SR [Concomitant]
     Dosage: 150MG, ONE TABLET TWICE DAILY
     Route: 048
  11. IBUPROFEN [Concomitant]
     Dosage: 800MG, TID
     Dates: start: 20040225
  12. LEXAPRO [Concomitant]
     Dosage: 10MG, ONECE DAILY
     Dates: start: 20040518
  13. LISINOPRIL AND HYDROCHLOROTHIAZIDE [Concomitant]
     Dosage: 12.5-20MG,
     Dates: start: 20040518
  14. NORVASC [Concomitant]
     Dosage: 10MG, DAILY
     Dates: start: 20040518
  15. OXYCODONE HYDROCHLORIDE [Concomitant]
     Dosage: 5MG,
     Dates: start: 20040527
  16. OXYCONTIN [Concomitant]
     Dosage: 20MG,
     Dates: start: 20040527
  17. EPOGEN [Concomitant]
  18. SENNA [Concomitant]
     Dosage: ONE TABLE SPOON, QD
     Route: 049
  19. PREVACID [Concomitant]
  20. COLACE [Concomitant]
  21. ZESTORETIC [Concomitant]
  22. KAY CIEL DURA-TABS [Concomitant]
  23. PENICILLIN ^GRUNENTHAL^ [Concomitant]
  24. VITAMIN B-12 [Concomitant]

REACTIONS (39)
  - ABSCESS [None]
  - ACTINOMYCOTIC SKIN INFECTION [None]
  - ANAEMIA [None]
  - ANXIETY [None]
  - ASTHENIA [None]
  - BONE DISORDER [None]
  - CANDIDIASIS [None]
  - CELLULITIS [None]
  - CHOLECYSTECTOMY [None]
  - CHOLECYSTITIS CHRONIC [None]
  - COMPRESSION FRACTURE [None]
  - CONFUSIONAL STATE [None]
  - CONSTIPATION [None]
  - DECREASED APPETITE [None]
  - DEPRESSION [None]
  - EPISTAXIS [None]
  - GASTROOESOPHAGEAL REFLUX DISEASE [None]
  - HYPOTENSION [None]
  - INCISIONAL DRAINAGE [None]
  - INJURY [None]
  - JAW FRACTURE [None]
  - JAW OPERATION [None]
  - LUNG NEOPLASM [None]
  - NIGHT SWEATS [None]
  - OSTEOLYSIS [None]
  - OSTEOMYELITIS [None]
  - OSTEONECROSIS OF JAW [None]
  - OSTEOPENIA [None]
  - PAIN [None]
  - POOR DENTAL CONDITION [None]
  - PROSTATIC DISORDER [None]
  - PURULENT DISCHARGE [None]
  - SPINAL COLUMN STENOSIS [None]
  - SPINAL CORPECTOMY [None]
  - SPINAL LAMINECTOMY [None]
  - THROMBOCYTOPENIA [None]
  - URINARY RETENTION [None]
  - VISION BLURRED [None]
  - WEIGHT DECREASED [None]
